FAERS Safety Report 14819668 (Version 1)
Quarter: 2018Q2

REPORT INFORMATION
  Report Type: Spontaneous
  Country: FR (occurrence: FR)
  Receive Date: 20180427
  Receipt Date: 20180427
  Transmission Date: 20180711
  Serious: Yes (Other)
  Sender: FDA-Public Use
  Company Number: FR-MERCK KGAA-2046729

PATIENT
  Age: 43 Year
  Sex: Female

DRUGS (1)
  1. NOVOTHYROX [Suspect]
     Active Substance: LEVOTHYROXINE SODIUM
     Indication: POST PROCEDURAL HYPOTHYROIDISM
     Dates: start: 201706

REACTIONS (30)
  - Impatience [None]
  - Memory impairment [Not Recovered/Not Resolved]
  - Migraine [Not Recovered/Not Resolved]
  - Balance disorder [Not Recovered/Not Resolved]
  - Irritability [Not Recovered/Not Resolved]
  - Emotional disorder [Not Recovered/Not Resolved]
  - Disturbance in attention [Not Recovered/Not Resolved]
  - Loss of libido [Recovering/Resolving]
  - Hypothyroidism [None]
  - Headache [Not Recovered/Not Resolved]
  - Abdominal distension [None]
  - Dyspnoea [Not Recovered/Not Resolved]
  - Decreased appetite [None]
  - Feeling abnormal [Not Recovered/Not Resolved]
  - Motor dysfunction [Not Recovered/Not Resolved]
  - Anxiety [None]
  - Pain [Not Recovered/Not Resolved]
  - Impaired work ability [None]
  - Constipation [Recovering/Resolving]
  - Affective disorder [Not Recovered/Not Resolved]
  - Palpitations [Not Recovered/Not Resolved]
  - Ill-defined disorder [Not Recovered/Not Resolved]
  - Abdominal pain upper [None]
  - Aggression [Not Recovered/Not Resolved]
  - Apathy [None]
  - Social avoidant behaviour [None]
  - Haemorrhage [None]
  - Arthralgia [Not Recovered/Not Resolved]
  - Dizziness [None]
  - Blood thyroid stimulating hormone [Not Recovered/Not Resolved]

NARRATIVE: CASE EVENT DATE: 201708
